FAERS Safety Report 11603602 (Version 1)
Quarter: 2015Q4

REPORT INFORMATION
  Report Type: Spontaneous
  Country: US (occurrence: None)
  Receive Date: 20151006
  Receipt Date: 20151006
  Transmission Date: 20160304
  Serious: Yes (Hospitalization)
  Sender: FDA-Public Use
  Company Number: None

PATIENT
  Age: 67 Year
  Sex: Female
  Weight: 56.2 kg

DRUGS (3)
  1. TAXOL [Suspect]
     Active Substance: PACLITAXEL
     Dates: end: 20150903
  2. METFORMIN HYDROCHLORIDE. [Suspect]
     Active Substance: METFORMIN HYDROCHLORIDE
     Dates: end: 20150923
  3. CARBOPLATIN. [Suspect]
     Active Substance: CARBOPLATIN
     Dates: end: 20150903

REACTIONS (8)
  - Pain [None]
  - Abdominal pain upper [None]
  - Pelvic venous thrombosis [None]
  - Pyrexia [None]
  - Chills [None]
  - Fatigue [None]
  - Cholangitis [None]
  - Asthenia [None]

NARRATIVE: CASE EVENT DATE: 20150926
